FAERS Safety Report 4304748-9 (Version None)
Quarter: 2004Q1

REPORT INFORMATION
  Report Type: 
  Country: None (occurrence: None)
  Receive Date: 20040224
  Receipt Date: 20040213
  Transmission Date: 20041129
  Serious: No
  Sender: FDA-Public Use
  Company Number: 2004GB00417

PATIENT
  Age: 19 Year
  Sex: Female

DRUGS (3)
  1. DIPRIVAN [Suspect]
     Indication: ANAESTHESIA
     Dates: start: 20031001, end: 20031001
  2. ONDANSETRON HCL [Concomitant]
  3. FENTANYL [Concomitant]

REACTIONS (1)
  - DYSTONIA [None]
